FAERS Safety Report 4275126-6 (Version None)
Quarter: 2004Q1

REPORT INFORMATION
  Report Type: 
  Country: None (occurrence: None)
  Receive Date: 20040116
  Receipt Date: 20040105
  Transmission Date: 20041129
  Serious: Yes (Hospitalization)
  Sender: FDA-Public Use
  Company Number: 2003122773

PATIENT
  Age: 15 Year
  Sex: Female

DRUGS (1)
  1. ATARAX [Suspect]
     Indication: RASH
     Dosage: 25 MG (DAILY), ORAL
     Route: 048

REACTIONS (2)
  - HYPOAESTHESIA [None]
  - SOMNOLENCE [None]
